FAERS Safety Report 10175462 (Version 2)
Quarter: 2014Q2

REPORT INFORMATION
  Report Type: Spontaneous
  Country: DE (occurrence: DE)
  Receive Date: 20140515
  Receipt Date: 20140526
  Transmission Date: 20141212
  Serious: Yes (Hospitalization, Other)
  Sender: FDA-Public Use
  Company Number: DE-ROCHE-1401051

PATIENT
  Age: 45 Year
  Sex: Female
  Weight: 58 kg

DRUGS (8)
  1. NEULASTA [Suspect]
     Indication: PROPHYLAXIS
     Route: 042
     Dates: start: 20140110, end: 20140110
  2. HERCEPTIN [Suspect]
     Indication: BREAST CANCER
     Route: 042
     Dates: start: 20140109
  3. EPIRUBICIN [Suspect]
     Indication: BREAST CANCER
     Route: 042
     Dates: start: 20131129
  4. NAB-PACLITAXEL [Suspect]
     Indication: BREAST CANCER
     Route: 042
  5. OMEPRAZOL [Concomitant]
  6. DEXAMETHASON [Concomitant]
     Route: 065
     Dates: start: 20140109, end: 20140109
  7. TAVEGIL [Concomitant]
     Route: 065
     Dates: start: 20140109, end: 20140109
  8. ONDANSETRON [Concomitant]
     Route: 065
     Dates: start: 20140109, end: 20140109

REACTIONS (3)
  - Pyrexia [Recovered/Resolved]
  - Leukocytosis [Unknown]
  - Sinusitis [Unknown]
